FAERS Safety Report 24379626 (Version 1)
Quarter: 2024Q3

REPORT INFORMATION
  Report Type: Spontaneous
  Country: US (occurrence: US)
  Receive Date: 20240930
  Receipt Date: 20240930
  Transmission Date: 20241017
  Serious: No
  Sender: TEVA
  Company Number: US-TEVA-VS-3219064

PATIENT
  Age: 77 Year
  Sex: Female

DRUGS (2)
  1. AUSTEDO XR [Suspect]
     Active Substance: DEUTETRABENAZINE
     Indication: Dyskinesia
     Dosage: 2 TABS QD
     Route: 065
     Dates: start: 20230601, end: 20240615
  2. AUSTEDO XR [Suspect]
     Active Substance: DEUTETRABENAZINE
     Indication: Dyskinesia
     Dosage: 6MG+24MG, QD
     Route: 048

REACTIONS (2)
  - Vasomotor rhinitis [Unknown]
  - Headache [Unknown]
